FAERS Safety Report 10345297 (Version 1)
Quarter: 2014Q3

REPORT INFORMATION
  Report Type: Spontaneous
  Country: US (occurrence: None)
  Receive Date: 20140725
  Receipt Date: 20140725
  Transmission Date: 20150326
  Serious: Yes (Other)
  Sender: FDA-Public Use
  Company Number: None

PATIENT
  Sex: Male

DRUGS (1)
  1. TOPIRAMATE. [Suspect]
     Active Substance: TOPIRAMATE
     Route: 048
     Dates: start: 20130206

REACTIONS (3)
  - Screaming [None]
  - Confusional state [None]
  - Agitation [None]

NARRATIVE: CASE EVENT DATE: 20130206
